FAERS Safety Report 9245929 (Version 2)
Quarter: 2013Q4

REPORT INFORMATION
  Report Type: Report from Study
  Country: JP (occurrence: JP)
  Receive Date: 20130422
  Receipt Date: 20131008
  Transmission Date: 20140711
  Serious: No
  Sender: FDA-Public Use
  Company Number: PHHY2013JP038376

PATIENT
  Age: 55 Year
  Sex: Female

DRUGS (2)
  1. FTY 720 [Suspect]
     Indication: MULTIPLE SCLEROSIS
     Dosage: 0.5 MG, QD
     Route: 048
     Dates: start: 20120904, end: 20121102
  2. LIPITOR [Concomitant]
     Dosage: 5 MG, UNK
     Route: 048

REACTIONS (1)
  - Liver disorder [Recovered/Resolved]
